FAERS Safety Report 25330459 (Version 2)
Quarter: 2025Q2

REPORT INFORMATION
  Report Type: Spontaneous
  Country: US (occurrence: US)
  Receive Date: 20250519
  Receipt Date: 20250529
  Transmission Date: 20250717
  Serious: Yes (Other)
  Sender: ROCHE
  Company Number: US-ROCHE-10000283449

PATIENT
  Sex: Male
  Weight: 84.4 kg

DRUGS (1)
  1. XOLAIR [Suspect]
     Active Substance: OMALIZUMAB
     Indication: Food allergy
     Dosage: RECENT DOSE: 14-MAY-2025
     Route: 058
     Dates: start: 20250319

REACTIONS (4)
  - Dizziness [Unknown]
  - Muscular weakness [Unknown]
  - Anxiety [Unknown]
  - Anaphylactic reaction [Unknown]
